FAERS Safety Report 6104783-4 (Version None)
Quarter: 2009Q1

REPORT INFORMATION
  Report Type: 
  Country: None (occurrence: None)
  Receive Date: 20090306
  Receipt Date: 20090223
  Transmission Date: 20090719
  Serious: Yes (Other)
  Sender: FDA-Public Use
  Company Number: PHEH2009US01976

PATIENT
  Sex: Female

DRUGS (1)
  1. DIOVAN HCT [Suspect]
     Dosage: 320/25 MG
     Route: 048

REACTIONS (4)
  - COUGH [None]
  - FRACTURE [None]
  - INFLUENZA [None]
  - RESPIRATORY TRACT IRRITATION [None]
